FAERS Safety Report 6221424-6 (Version None)
Quarter: 2009Q2

REPORT INFORMATION
  Report Type: 
  Country: None (occurrence: None)
  Receive Date: 20090610
  Receipt Date: 20090527
  Transmission Date: 20091009
  Serious: Yes (Hospitalization, Other)
  Sender: FDA-Public Use
  Company Number: FR-ELI_LILLY_AND_COMPANY-FR200905005144

PATIENT
  Sex: Female

DRUGS (7)
  1. FORTEO [Suspect]
     Indication: OSTEOPOROSIS
     Dosage: 20 UG, DAILY (1/D)
     Route: 058
     Dates: start: 20090201, end: 20090418
  2. FORTEO [Suspect]
     Dosage: 20 UG, DAILY (1/D)
     Route: 058
     Dates: start: 20090101
  3. CADENS [Concomitant]
     Dosage: 1 D/F, DAILY (1/D)
     Route: 058
     Dates: start: 20090201, end: 20090418
  4. MONOTILDIEM [Concomitant]
     Dosage: 300 MG, DAILY (1/D)
     Route: 048
  5. COZAAR [Concomitant]
     Dosage: 100 MG, DAILY (1/D)
     Route: 048
  6. IXPRIM [Concomitant]
     Dosage: 1 D/F, 3/D
     Route: 048
  7. ZOPICLONE [Concomitant]
     Dosage: 1 D/F, DAILY (1/D)
     Route: 048

REACTIONS (5)
  - CEREBRAL ISCHAEMIA [None]
  - DYSPHASIA [None]
  - ELECTROENCEPHALOGRAM ABNORMAL [None]
  - MONOPARESIS [None]
  - PYREXIA [None]
